FAERS Safety Report 7014039-3 (Version None)
Quarter: 2010Q3

REPORT INFORMATION
  Report Type: 
  Country: None (occurrence: None)
  Receive Date: 20100927
  Receipt Date: 20100920
  Transmission Date: 20110219
  Serious: Yes (Hospitalization)
  Sender: FDA-Public Use
  Company Number: US-BIOGENIDEC-2010BI032638

PATIENT
  Age: 61 Year
  Sex: Female

DRUGS (2)
  1. TYSABRI [Suspect]
     Indication: MULTIPLE SCLEROSIS
     Route: 042
     Dates: start: 20070309, end: 20090814
  2. TYSABRI [Suspect]
     Route: 042
     Dates: start: 20100208

REACTIONS (5)
  - DIARRHOEA [None]
  - HAEMORRHOIDS [None]
  - HEADACHE [None]
  - MULTIPLE SCLEROSIS [None]
  - NEPHROLITHIASIS [None]
